FAERS Safety Report 4548175-8 (Version None)
Quarter: 2005Q1

REPORT INFORMATION
  Report Type: 
  Country: None (occurrence: None)
  Receive Date: 20050110
  Receipt Date: 20041227
  Transmission Date: 20050727
  Serious: Yes (Other)
  Sender: FDA-Public Use
  Company Number: 200412904DE

PATIENT
  Age: 18 Year
  Sex: Female

DRUGS (1)
  1. KETEK [Suspect]
     Route: 048
     Dates: start: 20041001

REACTIONS (2)
  - ABORTION INDUCED [None]
  - DRUG EXPOSURE DURING PREGNANCY [None]
